FAERS Safety Report 23760239 (Version 1)
Quarter: 2024Q2

REPORT INFORMATION
  Report Type: Spontaneous
  Country: CN (occurrence: CN)
  Receive Date: 20240419
  Receipt Date: 20240419
  Transmission Date: 20240716
  Serious: Yes (Hospitalization, Other)
  Sender: FDA-Public Use
  Company Number: CN-SUN PHARMACEUTICAL INDUSTRIES LTD-2024R1-442346

PATIENT
  Age: 42 Year
  Sex: Male

DRUGS (1)
  1. MESALAMINE [Suspect]
     Active Substance: MESALAMINE
     Indication: Functional gastrointestinal disorder
     Dosage: UNK
     Route: 065

REACTIONS (2)
  - Intestinal tuberculosis [Unknown]
  - Drug ineffective [Unknown]
